FAERS Safety Report 4788050-7 (Version None)
Quarter: 2005Q4

REPORT INFORMATION
  Report Type: 
  Country: None (occurrence: None)
  Receive Date: 20051004
  Receipt Date: 20051004
  Transmission Date: 20060501
  Serious: Yes (Hospitalization)
  Sender: FDA-Public Use
  Company Number: None

PATIENT
  Age: 80 Year
  Sex: Male
  Weight: 75 kg

DRUGS (6)
  1. BEVACIZUMAB           GENENTECH [Suspect]
     Indication: COLORECTAL CANCER METASTATIC
     Dosage: 5 MG/KG   EVERY 2 WEEKS   IV DRIP
     Route: 041
     Dates: start: 20050925, end: 20050925
  2. CALCIUM GLUCONATE [Concomitant]
  3. LEUCOVORIN [Concomitant]
  4. FLUOROURACIL [Concomitant]
  5. DEXAMETHASONE [Concomitant]
  6. ONDANSETRON [Concomitant]

REACTIONS (1)
  - CEREBRAL INFARCTION [None]
